FAERS Safety Report 7636859-4 (Version None)
Quarter: 2011Q3

REPORT INFORMATION
  Report Type: 
  Country: None (occurrence: None)
  Receive Date: 20110726
  Receipt Date: 20110713
  Transmission Date: 20111222
  Serious: Yes (Life-Threatening, Hospitalization, Other)
  Sender: FDA-Public Use
  Company Number: FR-JNJFOC-2004105784

PATIENT
  Sex: Female

DRUGS (7)
  1. XANAX [Suspect]
     Indication: ILL-DEFINED DISORDER
     Route: 048
  2. ATARAX [Suspect]
     Indication: ILL-DEFINED DISORDER
     Dosage: DAILY DOSE QTY: 50 MG
     Route: 048
  3. ZOCOR [Suspect]
     Indication: ILL-DEFINED DISORDER
     Dosage: DAILY DOSE TEXT: 1 DOSAGE FORM
     Route: 048
  4. MEDIATOR [Suspect]
     Indication: ILL-DEFINED DISORDER
     Dosage: DAILY DOSE QTY: 300 MG
     Route: 048
  5. STABLON [Suspect]
     Indication: ILL-DEFINED DISORDER
     Dosage: DAILY DOSE QTY: 25 MG
     Route: 048
  6. ZYRTEC [Suspect]
     Indication: PRURITUS
     Dosage: DAILY DOSE QTY: 30 MG
     Route: 048
     Dates: start: 20030911, end: 20031105
  7. ZYRTEC [Suspect]
     Route: 048

REACTIONS (7)
  - VENTRICULAR FLUTTER [None]
  - HYPOKALAEMIA [None]
  - TORSADE DE POINTES [None]
  - OVERDOSE [None]
  - CARDIAC ARREST [None]
  - LOSS OF CONSCIOUSNESS [None]
  - ELECTROCARDIOGRAM QT PROLONGED [None]
